FAERS Safety Report 7017834-X (Version None)
Quarter: 2010Q3

REPORT INFORMATION
  Report Type: 
  Country: None (occurrence: None)
  Receive Date: 20100909
  Receipt Date: 20100625
  Transmission Date: 20110219
  Serious: No
  Sender: FDA-Public Use
  Company Number: 2010SP036003

PATIENT
  Age: 50 Year
  Sex: Female

DRUGS (3)
  1. SAPHRIS [Suspect]
     Indication: BIPOLAR DISORDER
     Dosage: 5 MG;QD;SL, 5 MG;BID;SL
     Route: 060
     Dates: start: 20100604
  2. LEXAPRO (CON.) [Concomitant]
  3. WELLBUTRIN XL (CON.) [Concomitant]

REACTIONS (4)
  - DYSGEUSIA [None]
  - INAPPROPRIATE SCHEDULE OF DRUG ADMINISTRATION [None]
  - THERAPEUTIC PRODUCT INEFFECTIVE [None]
  - UNDERDOSE [None]
